FAERS Safety Report 5357114-1 (Version None)
Quarter: 2007Q2

REPORT INFORMATION
  Report Type: 
  Country: None (occurrence: None)
  Receive Date: 20070612
  Receipt Date: 20070606
  Transmission Date: 20071010
  Serious: Yes (Death, Hospitalization)
  Sender: FDA-Public Use
  Company Number: TCI2007A02551

PATIENT
  Age: 74 Year
  Sex: Male

DRUGS (9)
  1. LANSOPRAZOLE [Suspect]
     Indication: GASTRIC ULCER
     Dosage: 30 MG (30 MG, 1 IN 1 D), INTRAVENOUS DRIP
     Route: 041
     Dates: start: 20070525, end: 20070525
  2. SESDEN (TIMEPIDIUM BROMIDE) (7.5 MILLIGRAM, INJECTION) [Concomitant]
  3. NINOBARUCIN (NISOLDIPINE) (TABLETS) [Concomitant]
  4. KETOBUN A (ALLOPURINOL) (TABLETS) [Concomitant]
  5. ZENASPIRIN (ACETYLSALICYLIC ACID) (TABLETS) [Concomitant]
  6. HIRUBULIN N (NICERGOLINE) (TABLETS) [Concomitant]
  7. ATENDAL (ATENOLOL) (TABLETS) [Concomitant]
  8. TAMSULOSIN HYDROCHLORIDE (TABLETS) [Concomitant]
  9. CETILO (RHUBARB/SENNA COMBINED DRUG) (TABLETS) [Concomitant]

REACTIONS (11)
  - ANAPHYLACTIC SHOCK [None]
  - BACK PAIN [None]
  - DYSPNOEA [None]
  - HAEMATOCRIT DECREASED [None]
  - HAEMOGLOBIN DECREASED [None]
  - HELICOBACTER PYLORI IDENTIFICATION TEST POSITIVE [None]
  - HYPERHIDROSIS [None]
  - MYOCARDIAL INFARCTION [None]
  - PROTEIN TOTAL DECREASED [None]
  - RED BLOOD CELL COUNT DECREASED [None]
  - WHITE BLOOD CELL COUNT INCREASED [None]
